FAERS Safety Report 9272846 (Version 1)
Quarter: 2013Q2

REPORT INFORMATION
  Report Type: Spontaneous
  Country: US (occurrence: US)
  Receive Date: 20130506
  Receipt Date: 20130506
  Transmission Date: 20140414
  Serious: No
  Sender: FDA-Public Use
  Company Number: US-ASTRAZENECA-2013SE04021

PATIENT
  Age: 34 Year
  Sex: Female

DRUGS (2)
  1. PRILOSEC OTC [Suspect]
     Indication: GASTROOESOPHAGEAL REFLUX DISEASE
     Route: 048
  2. B12 [Concomitant]
     Dosage: UNKNOWN

REACTIONS (7)
  - Throat tightness [Unknown]
  - Chest pain [Unknown]
  - Irritable bowel syndrome [Unknown]
  - Paraesthesia [Unknown]
  - Muscle spasms [Unknown]
  - Incorrect drug administration duration [Unknown]
  - Off label use [Unknown]
